FAERS Safety Report 7280261-4 (Version None)
Quarter: 2011Q1

REPORT INFORMATION
  Report Type: 
  Country: None (occurrence: None)
  Receive Date: 20110208
  Receipt Date: 20101111
  Transmission Date: 20110831
  Serious: No
  Sender: FDA-Public Use
  Company Number: US-BAYER-2010-000308

PATIENT
  Sex: Female

DRUGS (3)
  1. MIRENA [Suspect]
     Dosage: UNK
     Dates: end: 20100101
  2. MIRENA [Suspect]
     Indication: CONTRACEPTION
     Dosage: UNK
     Dates: start: 20100825, end: 20100101
  3. MIRENA [Suspect]
     Dosage: UNK
     Dates: start: 20100926

REACTIONS (1)
  - INTERCEPTED MEDICATION ERROR [None]
